FAERS Safety Report 15929050 (Version 1)
Quarter: 2019Q1

REPORT INFORMATION
  Report Type: Spontaneous
  Country: US (occurrence: US)
  Receive Date: 20190206
  Receipt Date: 20190206
  Transmission Date: 20190417
  Serious: Yes (Other)
  Sender: FDA-Public Use
  Company Number: US-OTSUKA-2018_010833

PATIENT
  Sex: Male

DRUGS (58)
  1. ABILIFY [Suspect]
     Active Substance: ARIPIPRAZOLE
     Dosage: 15 MG, QD (STRENGTH: 30 MG) TAKE ONE HALF TABLET
     Route: 048
     Dates: start: 20120624, end: 20130124
  2. OXYCODONE HYDROCHLORIDE. [Concomitant]
     Active Substance: OXYCODONE HYDROCHLORIDE
     Dosage: UNK
     Route: 048
     Dates: start: 20150504, end: 20150603
  3. OXYCODONE HYDROCHLORIDE. [Concomitant]
     Active Substance: OXYCODONE HYDROCHLORIDE
     Dosage: UNK
     Route: 048
     Dates: start: 20140409, end: 20140509
  4. OXYCODONE HYDROCHLORIDE. [Concomitant]
     Active Substance: OXYCODONE HYDROCHLORIDE
     Dosage: UNK
     Route: 048
     Dates: start: 20131218, end: 20140117
  5. HEPATITIS B [Concomitant]
     Active Substance: HUMAN HEPATITIS B VIRUS IMMUNE GLOBULIN
     Dosage: 0.5 MG, UNK
     Route: 030
     Dates: start: 20130528, end: 20130627
  6. IBUPROFEN. [Concomitant]
     Active Substance: IBUPROFEN
     Indication: INFLAMMATION
     Dosage: 1 DF, TID
     Route: 048
     Dates: start: 20120830, end: 20130831
  7. BISACODYL. [Concomitant]
     Active Substance: BISACODYL
     Indication: PRODUCT USED FOR UNKNOWN INDICATION
     Dosage: UNK
     Route: 048
     Dates: start: 20130524, end: 20130623
  8. EDARBYCLOR [Concomitant]
     Active Substance: AZILSARTAN KAMEDOXOMIL\CHLORTHALIDONE
     Indication: PRODUCT USED FOR UNKNOWN INDICATION
     Dosage: UNK
     Route: 065
  9. ZIPRASIDONE. [Concomitant]
     Active Substance: ZIPRASIDONE
     Indication: AFFECTIVE DISORDER
     Dosage: 40 MG, BID
     Route: 048
     Dates: start: 20170207, end: 20180208
  10. ALFUZOSIN HCL [Concomitant]
     Active Substance: ALFUZOSIN HYDROCHLORIDE
     Dosage: 10 MG, QD
     Route: 048
     Dates: start: 20160112, end: 20170112
  11. ALFUZOSIN HCL [Concomitant]
     Active Substance: ALFUZOSIN HYDROCHLORIDE
     Dosage: 10 MG, QD
     Route: 048
  12. ABILIFY [Suspect]
     Active Substance: ARIPIPRAZOLE
     Indication: AFFECTIVE DISORDER
     Dosage: UNK
     Route: 065
     Dates: start: 20040101
  13. ABILIFY [Suspect]
     Active Substance: ARIPIPRAZOLE
     Dosage: 15 MG, QD (STRENGTH: 30 MG) TAKE ONE HALF TABLET
     Route: 048
     Dates: start: 20130530, end: 20140531
  14. ARIPIPRAZOLE. [Concomitant]
     Active Substance: ARIPIPRAZOLE
     Indication: PRODUCT USED FOR UNKNOWN INDICATION
     Dosage: UNK
     Route: 065
     Dates: start: 20160303, end: 20170107
  15. OXYCODONE HYDROCHLORIDE. [Concomitant]
     Active Substance: OXYCODONE HYDROCHLORIDE
     Indication: PAIN
     Dosage: UNK
     Route: 048
     Dates: start: 20151222, end: 20160121
  16. ABILIFY [Suspect]
     Active Substance: ARIPIPRAZOLE
     Indication: BIPOLAR DISORDER
     Dosage: 1 DF, QD (5-30 MG)
     Route: 065
     Dates: start: 200701, end: 201601
  17. ABILIFY [Suspect]
     Active Substance: ARIPIPRAZOLE
     Dosage: 15 MG, QD (STRENGTH: 30 MG) TAKE ONE HALF TABLET
     Route: 048
     Dates: start: 20130108, end: 20140109
  18. ABILIFY [Suspect]
     Active Substance: ARIPIPRAZOLE
     Dosage: 10 MG, QD (STRENGHT: 20 MG) TAKE ONE HALF TABLET
     Route: 048
     Dates: start: 20131217, end: 20141218
  19. ABILIFY [Suspect]
     Active Substance: ARIPIPRAZOLE
     Dosage: 10 MG, QD (STRENGHT: 20 MG) TAKE ONE HALF TABLET
     Route: 048
     Dates: start: 20140108, end: 20150109
  20. ABILIFY [Suspect]
     Active Substance: ARIPIPRAZOLE
     Dosage: 10 MG, QD (STRENGHT: 20 MG) TAKE ONE HALF TABLET
     Route: 048
     Dates: start: 20150512, end: 20160512
  21. AMLODIPINE BESYLATE. [Concomitant]
     Active Substance: AMLODIPINE BESYLATE
     Indication: CARDIAC DISORDER
     Dosage: UNK
     Route: 048
     Dates: start: 20131022, end: 20141023
  22. OXYCODONE HYDROCHLORIDE. [Concomitant]
     Active Substance: OXYCODONE HYDROCHLORIDE
     Dosage: UNK
     Route: 048
     Dates: start: 20141027, end: 20141126
  23. OXYCODONE HYDROCHLORIDE. [Concomitant]
     Active Substance: OXYCODONE HYDROCHLORIDE
     Dosage: UNK
     Route: 048
     Dates: start: 20130528, end: 20130627
  24. ALFUZOSIN [Concomitant]
     Active Substance: ALFUZOSIN
     Indication: PRODUCT USED FOR UNKNOWN INDICATION
     Dosage: UNK
     Route: 065
  25. METOPROLOL. [Concomitant]
     Active Substance: METOPROLOL
     Indication: PRODUCT USED FOR UNKNOWN INDICATION
     Dosage: UNK
     Route: 065
  26. DIVALPROEX [Concomitant]
     Active Substance: DIVALPROEX SODIUM
     Indication: AFFECTIVE DISORDER
     Dosage: 500 MG, AT BED TIME
     Route: 048
     Dates: start: 20170703, end: 20180404
  27. ABILIFY [Suspect]
     Active Substance: ARIPIPRAZOLE
     Dosage: 15 MG, QD (STRENGTH: 30 MG) TAKE ONE HALF TABLET
     Route: 048
     Dates: start: 20120814, end: 20130815
  28. OXYCODONE HYDROCHLORIDE. [Concomitant]
     Active Substance: OXYCODONE HYDROCHLORIDE
     Dosage: UNK
     Route: 048
     Dates: start: 20151119, end: 20151219
  29. OXYCODONE HYDROCHLORIDE. [Concomitant]
     Active Substance: OXYCODONE HYDROCHLORIDE
     Dosage: UNK
     Route: 048
     Dates: start: 20150225, end: 20150327
  30. TAMSULOSIN HCL [Concomitant]
     Active Substance: TAMSULOSIN HYDROCHLORIDE
     Dosage: UNK
     Route: 048
     Dates: start: 20130108, end: 20140109
  31. HYALURONATE NA [Concomitant]
     Active Substance: HYALURONATE SODIUM
     Indication: PRODUCT USED FOR UNKNOWN INDICATION
     Dosage: 10 MG/M2, QW
     Route: 014
  32. LOSARTAN. [Concomitant]
     Active Substance: LOSARTAN
     Indication: PRODUCT USED FOR UNKNOWN INDICATION
     Dosage: UNK
     Route: 065
  33. OXYCODONE HYDROCHLORIDE. [Concomitant]
     Active Substance: OXYCODONE HYDROCHLORIDE
     Dosage: UNK
     Route: 048
     Dates: start: 20150925, end: 20151025
  34. OXYCODONE HYDROCHLORIDE. [Concomitant]
     Active Substance: OXYCODONE HYDROCHLORIDE
     Dosage: UNK
     Route: 048
     Dates: start: 20150203, end: 20150305
  35. HEPATITIS B [Concomitant]
     Active Substance: HUMAN HEPATITIS B VIRUS IMMUNE GLOBULIN
     Indication: PRODUCT USED FOR UNKNOWN INDICATION
     Dosage: 0.5 MG, UNK
     Route: 030
     Dates: start: 20131021, end: 20131120
  36. ABILIFY [Suspect]
     Active Substance: ARIPIPRAZOLE
     Dosage: 10 MG, QD (STRENGHT: 20 MG) TAKE ONE HALF TABLET
     Route: 048
     Dates: start: 20160108, end: 20170108
  37. AMLODIPINE BESYLATE. [Concomitant]
     Active Substance: AMLODIPINE BESYLATE
     Indication: BLOOD PRESSURE MEASUREMENT
     Dosage: 1 DF, QD
     Route: 048
     Dates: start: 20140904, end: 20150905
  38. AMLODIPINE BESYLATE. [Concomitant]
     Active Substance: AMLODIPINE BESYLATE
     Dosage: UNK
     Route: 048
     Dates: start: 20120611, end: 20130612
  39. AMLODIPINE BESYLATE. [Concomitant]
     Active Substance: AMLODIPINE BESYLATE
     Dosage: UNK
     Route: 048
     Dates: start: 20120208, end: 20130208
  40. FLUTICASONE. [Concomitant]
     Active Substance: FLUTICASONE
     Indication: HYPERSENSITIVITY
     Dosage: 1 SPRAY IN EACH NOSTRIL
     Route: 045
     Dates: start: 20150805, end: 20160805
  41. TAMSULOSIN HCL [Concomitant]
     Active Substance: TAMSULOSIN HYDROCHLORIDE
     Indication: BENIGN PROSTATIC HYPERPLASIA
     Dosage: 1 DF, QD
     Route: 048
     Dates: start: 20150911, end: 20151210
  42. FLUNISOLIDE. [Concomitant]
     Active Substance: FLUNISOLIDE
     Indication: HYPERSENSITIVITY
     Dosage: UNK
     Route: 045
     Dates: start: 20140903, end: 20150904
  43. IBUPROFEN. [Concomitant]
     Active Substance: IBUPROFEN
     Indication: PAIN
  44. ALFUZOSIN HCL [Concomitant]
     Active Substance: ALFUZOSIN HYDROCHLORIDE
     Dosage: 10 MG, QD
     Route: 048
     Dates: start: 20160524, end: 20170525
  45. EUFLEXXA [Concomitant]
     Active Substance: HYALURONATE SODIUM
     Dosage: STRENGTH: 20 MG 10 MG/ML (INJECT 20 MG ONCE A WEEKE)
     Route: 014
  46. OXYCODONE HYDROCHLORIDE. [Concomitant]
     Active Substance: OXYCODONE HYDROCHLORIDE
     Dosage: UNK
     Route: 048
     Dates: start: 20150728, end: 20150827
  47. OXYCODONE HYDROCHLORIDE. [Concomitant]
     Active Substance: OXYCODONE HYDROCHLORIDE
     Dosage: UNK
     Route: 048
     Dates: start: 20141215, end: 20150114
  48. TAMSULOSIN HCL [Concomitant]
     Active Substance: TAMSULOSIN HYDROCHLORIDE
     Dosage: UNK
     Route: 048
     Dates: start: 20131022, end: 20141023
  49. VICTOZA [Concomitant]
     Active Substance: LIRAGLUTIDE
     Indication: PRODUCT USED FOR UNKNOWN INDICATION
     Dosage: UNK
     Route: 065
  50. ROSUVASTATIN. [Concomitant]
     Active Substance: ROSUVASTATIN
     Indication: PRODUCT USED FOR UNKNOWN INDICATION
     Dosage: UNK
     Route: 065
  51. ABILIFY [Suspect]
     Active Substance: ARIPIPRAZOLE
     Dosage: 10 MG, QD (STRENGHT: 20 MG) TAKE ONE HALF TABLET
     Route: 048
     Dates: start: 20140902, end: 20150903
  52. ABILIFY [Suspect]
     Active Substance: ARIPIPRAZOLE
     Dosage: 20 MG, QD
     Route: 048
     Dates: start: 20160513, end: 20170514
  53. LORATADINE. [Concomitant]
     Active Substance: LORATADINE
     Indication: HYPERSENSITIVITY
     Dosage: 1 DF, QD
     Route: 048
     Dates: start: 20150707, end: 20160707
  54. MONTELUKAST [Concomitant]
     Active Substance: MONTELUKAST SODIUM
     Indication: PRODUCT USED FOR UNKNOWN INDICATION
     Dosage: 1 DF, QD
     Route: 048
     Dates: start: 20141022, end: 20151023
  55. SILDENAFIL CITRATE. [Concomitant]
     Active Substance: SILDENAFIL CITRATE
     Indication: SEXUAL DYSFUNCTION
     Dosage: 1 DF, QD
     Route: 048
     Dates: start: 20120208, end: 20130208
  56. FUROSEMIDE. [Concomitant]
     Active Substance: FUROSEMIDE
     Indication: PRODUCT USED FOR UNKNOWN INDICATION
     Dosage: UNK
     Route: 065
  57. ALFUZOSIN HCL [Concomitant]
     Active Substance: ALFUZOSIN HYDROCHLORIDE
     Indication: BENIGN PROSTATIC HYPERPLASIA
     Dosage: 10 MG, QD
     Route: 048
     Dates: start: 20170126, end: 20180127
  58. EUFLEXXA [Concomitant]
     Active Substance: HYALURONATE SODIUM
     Indication: OSTEOARTHRITIS
     Dosage: STRENGTH: 20 MG 10 MG/ML (INJECT 20 MG ONCE A WEEK)
     Route: 014
     Dates: start: 20160329, end: 20170330

REACTIONS (42)
  - Blood sodium decreased [Unknown]
  - Rhinitis [Unknown]
  - Asthenia [Unknown]
  - Fatigue [Unknown]
  - Nausea [Unknown]
  - Weight increased [Unknown]
  - Blood calcium increased [Unknown]
  - Dyspnoea [Unknown]
  - Sinus disorder [Unknown]
  - Anhedonia [Unknown]
  - Albumin globulin ratio decreased [Unknown]
  - Boredom [Unknown]
  - Arthritis [Unknown]
  - Red blood cell count decreased [Unknown]
  - Emotional distress [Unknown]
  - Erythema [Unknown]
  - Nasal congestion [Unknown]
  - Pain [Unknown]
  - Anxiety [Unknown]
  - Gambling disorder [Not Recovered/Not Resolved]
  - Product use in unapproved indication [Unknown]
  - Deafness neurosensory [Unknown]
  - Cerumen impaction [Unknown]
  - Eating disorder [Unknown]
  - Alanine aminotransferase increased [Unknown]
  - Compulsions [Unknown]
  - Neuropathy peripheral [Unknown]
  - Nephropathy [Unknown]
  - Injury [Unknown]
  - Snoring [Unknown]
  - Sensory loss [Unknown]
  - Obsessive-compulsive disorder [Unknown]
  - Type 2 diabetes mellitus [Unknown]
  - Dysphoria [Unknown]
  - Red cell distribution width increased [Unknown]
  - Anion gap decreased [Unknown]
  - Body temperature increased [Unknown]
  - Back pain [Unknown]
  - Aspartate aminotransferase increased [Unknown]
  - Vomiting [Unknown]
  - Economic problem [Unknown]
  - Marital problem [Unknown]

NARRATIVE: CASE EVENT DATE: 20120624
